FAERS Safety Report 4894775-5 (Version None)
Quarter: 2006Q1

REPORT INFORMATION
  Report Type: 
  Country: None (occurrence: None)
  Receive Date: 20060130
  Receipt Date: 20060120
  Transmission Date: 20060701
  Serious: Yes (Other)
  Sender: FDA-Public Use
  Company Number: US-JNJFOC-20050805116

PATIENT
  Sex: Female
  Weight: 54.89 kg

DRUGS (9)
  1. REMICADE [Suspect]
     Route: 042
  2. REMICADE [Suspect]
     Dosage: 6 MG/KG  UPDATED INFORMATION ON 20-JAN-2006: 10 MG/KG
     Route: 042
  3. REMICADE [Suspect]
     Indication: CROHN'S DISEASE
     Route: 042
  4. 6-MP [Concomitant]
  5. PREDNISONE [Concomitant]
     Indication: PREMEDICATION
     Route: 048
  6. TYLENOL-500 [Concomitant]
     Indication: PREMEDICATION
  7. BENADRYL [Concomitant]
     Indication: PREMEDICATION
  8. ACIPHEX [Concomitant]
     Indication: PREMEDICATION
     Dosage: WITH PREDISONE
     Route: 048
  9. IRON [Concomitant]
     Indication: NUTRITIONAL SUPPORT

REACTIONS (6)
  - ABDOMINAL PAIN [None]
  - DIARRHOEA [None]
  - DRUG EXPOSURE DURING PREGNANCY [None]
  - PHARYNGITIS STREPTOCOCCAL [None]
  - PREMATURE LABOUR [None]
  - SINUSITIS [None]
